FAERS Safety Report 17759564 (Version 3)
Quarter: 2020Q2

REPORT INFORMATION
  Report Type: Spontaneous
  Country: US (occurrence: US)
  Receive Date: 20200508
  Receipt Date: 20200515
  Transmission Date: 20200714
  Serious: No
  Sender: FDA-Public Use
  Company Number: US-ASTRAZENECA-2020SE58078

PATIENT

DRUGS (14)
  1. OMEPRAZOLE. [Suspect]
     Active Substance: OMEPRAZOLE
     Route: 048
  2. EZETIMIBE. [Concomitant]
     Active Substance: EZETIMIBE
  3. ACETAMINOPHEN. [Concomitant]
     Active Substance: ACETAMINOPHEN
  4. ANASTROZOLE. [Suspect]
     Active Substance: ANASTROZOLE
     Route: 048
  5. LISINOPRIL. [Suspect]
     Active Substance: LISINOPRIL
     Route: 048
  6. DILTIAZEM. [Suspect]
     Active Substance: DILTIAZEM
     Route: 048
  7. METOPROLOL SUCCINATE. [Suspect]
     Active Substance: METOPROLOL SUCCINATE
     Indication: PRODUCT USED FOR UNKNOWN INDICATION
     Route: 048
  8. TAMOXIFEN [Suspect]
     Active Substance: TAMOXIFEN
     Route: 048
  9. DULOXETINE HCL [Concomitant]
     Active Substance: DULOXETINE HYDROCHLORIDE
  10. METFORMIN [Concomitant]
     Active Substance: METFORMIN HYDROCHLORIDE
  11. METOPROLOL. [Suspect]
     Active Substance: METOPROLOL
     Route: 065
  12. PRAVASTATIN. [Concomitant]
     Active Substance: PRAVASTATIN
  13. PROPOXYPHENE. [Concomitant]
     Active Substance: PROPOXYPHENE
  14. OXYCODONE HYDROCHLORIDE. [Concomitant]
     Active Substance: OXYCODONE HYDROCHLORIDE

REACTIONS (11)
  - Drug intolerance [Unknown]
  - Swelling [Unknown]
  - Myalgia [Unknown]
  - Dyspnoea [Unknown]
  - Hypersensitivity [Unknown]
  - Headache [Unknown]
  - Diarrhoea [Unknown]
  - Dizziness [Unknown]
  - Nausea [Unknown]
  - Oedema [Unknown]
  - Vomiting [Unknown]

NARRATIVE: CASE EVENT DATE: 20080909
